FAERS Safety Report 19999887 (Version 1)
Quarter: 2021Q4

REPORT INFORMATION
  Report Type: Spontaneous
  Country: CN (occurrence: CN)
  Receive Date: 20211026
  Receipt Date: 20211026
  Transmission Date: 20220303
  Serious: Yes (Death, Life-Threatening)
  Sender: FDA-Public Use
  Company Number: CN-GE HEALTHCARE-2021CSU005180

PATIENT

DRUGS (2)
  1. OMNISCAN [Suspect]
     Active Substance: GADODIAMIDE
     Indication: Magnetic resonance imaging abdominal
     Dosage: 15 ML, SINGLE
     Route: 042
     Dates: start: 20211015, end: 20211015
  2. OMNISCAN [Suspect]
     Active Substance: GADODIAMIDE
     Indication: Uterine leiomyoma

REACTIONS (3)
  - Cardio-respiratory arrest [Fatal]
  - Ventricular fibrillation [Not Recovered/Not Resolved]
  - Anaphylactic shock [Fatal]

NARRATIVE: CASE EVENT DATE: 20211015
